FAERS Safety Report 22655272 (Version 1)
Quarter: 2023Q2

REPORT INFORMATION
  Report Type: Spontaneous
  Country: US (occurrence: None)
  Receive Date: 20230629
  Receipt Date: 20230629
  Transmission Date: 20230722
  Serious: No
  Sender: FDA-Public Use
  Company Number: None

PATIENT
  Sex: Female

DRUGS (1)
  1. COSENTYX [Suspect]
     Active Substance: SECUKINUMAB
     Indication: Psoriasis
     Dosage: 300MG EVERY 4 WEEKS UNDER THE SKIN?
     Route: 058
     Dates: start: 202206

REACTIONS (4)
  - Drug ineffective [None]
  - Gait disturbance [None]
  - Stress [None]
  - Arthralgia [None]
